FAERS Safety Report 19088696 (Version 1)
Quarter: 2021Q2

REPORT INFORMATION
  Report Type: Report from Study
  Country: None (occurrence: US)
  Receive Date: 20210402
  Receipt Date: 20210402
  Transmission Date: 20210717
  Serious: Yes (Other)
  Sender: FDA-Public Use
  Company Number: US-ABBVIE-21K-163-3816388-00

PATIENT
  Age: 56 Year
  Sex: Female
  Weight: 88.53 kg

DRUGS (3)
  1. HUMIRA [Suspect]
     Active Substance: ADALIMUMAB
     Route: 058
     Dates: start: 202008
  2. METOPROLOL. [Concomitant]
     Active Substance: METOPROLOL
     Indication: HYPERTENSION
  3. HUMIRA [Suspect]
     Active Substance: ADALIMUMAB
     Indication: CROHN^S DISEASE
     Dosage: CITRATE FREE
     Route: 058

REACTIONS (12)
  - Crohn^s disease [Recovering/Resolving]
  - Crohn^s disease [Recovered/Resolved]
  - Migraine [Unknown]
  - Gastric disorder [Unknown]
  - Hypertension [Unknown]
  - Hypertension [Recovering/Resolving]
  - Headache [Recovered/Resolved]
  - Drug level decreased [Not Recovered/Not Resolved]
  - Abdominal distension [Recovering/Resolving]
  - Back pain [Recovered/Resolved]
  - Abdominal distension [Recovered/Resolved]
  - Diverticulitis [Not Recovered/Not Resolved]

NARRATIVE: CASE EVENT DATE: 20210119
